FAERS Safety Report 7943773-3 (Version None)
Quarter: 2011Q4

REPORT INFORMATION
  Report Type: 
  Country: None (occurrence: None)
  Receive Date: 20111128
  Receipt Date: 20111121
  Transmission Date: 20120403
  Serious: Yes (Other)
  Sender: FDA-Public Use
  Company Number: US-ROCHE-1015610

PATIENT
  Sex: Female

DRUGS (2)
  1. HYZAAR [Concomitant]
     Indication: PRODUCT USED FOR UNKNOWN INDICATION
  2. LUCENTIS [Suspect]
     Indication: VITREOUS FLOATERS
     Route: 050
     Dates: start: 20110218

REACTIONS (2)
  - VISUAL ACUITY REDUCED [None]
  - VITREOUS FLOATERS [None]
